FAERS Safety Report 6328076-5 (Version None)
Quarter: 2009Q3

REPORT INFORMATION
  Report Type: 
  Country: None (occurrence: None)
  Receive Date: 20090825
  Receipt Date: 20081020
  Transmission Date: 20100115
  Serious: No
  Sender: FDA-Public Use
  Company Number: US-ABBOTT-08P-163-0482896-00

PATIENT
  Sex: Female
  Weight: 52.21 kg

DRUGS (4)
  1. SYNTHROID [Suspect]
     Indication: THYROIDECTOMY
     Route: 048
     Dates: start: 20070501
  2. SYNTHROID [Suspect]
     Indication: THYROID CANCER
  3. OCTREOTIDE [Suspect]
     Indication: NEUROENDOCRINE CARCINOMA
     Route: 030
     Dates: start: 20070601
  4. ERGOCALCIFEROL [Concomitant]
     Indication: VITAMIN D DEFICIENCY

REACTIONS (2)
  - COELIAC DISEASE [None]
  - COLITIS MICROSCOPIC [None]
